FAERS Safety Report 4656947-4 (Version None)
Quarter: 2005Q2

REPORT INFORMATION
  Report Type: 
  Country: None (occurrence: None)
  Receive Date: 20050509
  Receipt Date: 20050414
  Transmission Date: 20051028
  Serious: Yes (Life-Threatening, Hospitalization)
  Sender: FDA-Public Use
  Company Number: US-MERCK-0504USA04190

PATIENT
  Sex: Female

DRUGS (3)
  1. FOSAMAX [Suspect]
     Indication: OSTEOPOROSIS
     Route: 048
     Dates: start: 20041101, end: 20050407
  2. MAVIK [Concomitant]
     Indication: HYPERTENSION
     Route: 065
  3. ADVIL [Concomitant]
     Indication: PAIN
     Route: 065

REACTIONS (3)
  - EROSIVE OESOPHAGITIS [None]
  - GASTRITIS HAEMORRHAGIC [None]
  - OESOPHAGEAL HAEMORRHAGE [None]
